FAERS Safety Report 6415290-3 (Version None)
Quarter: 2009Q4

REPORT INFORMATION
  Report Type: 
  Country: None (occurrence: None)
  Receive Date: 20091027
  Receipt Date: 20091015
  Transmission Date: 20100525
  Serious: Yes (Other)
  Sender: FDA-Public Use
  Company Number: FI-AVENTIS-200921421GDDC

PATIENT
  Sex: Male

DRUGS (2)
  1. APIDRA [Suspect]
     Route: 058
  2. LANTUS [Suspect]
     Route: 058

REACTIONS (3)
  - HYPOGLYCAEMIA [None]
  - PRODUCT QUALITY ISSUE [None]
  - WRONG DRUG ADMINISTERED [None]
